FAERS Safety Report 25187933 (Version 1)
Quarter: 2025Q2

REPORT INFORMATION
  Report Type: Spontaneous
  Country: JP (occurrence: JP)
  Receive Date: 20250411
  Receipt Date: 20250411
  Transmission Date: 20250716
  Serious: Yes (Hospitalization, Other)
  Sender: NOVITIUM PHARMA
  Company Number: JP-NOVITIUMPHARMA-2025JPNVP00886

PATIENT
  Age: 21 Year
  Sex: Female

DRUGS (11)
  1. ALPRAZOLAM [Suspect]
     Active Substance: ALPRAZOLAM
     Indication: Schizophrenia
  2. TRIAZOLAM [Concomitant]
     Active Substance: TRIAZOLAM
     Indication: Schizophrenia
  3. RISPERIDONE [Concomitant]
     Active Substance: RISPERIDONE
     Indication: Schizophrenia
  4. DULOXETINE [Concomitant]
     Active Substance: DULOXETINE
     Indication: Schizophrenia
  5. BROTIZOLAM [Concomitant]
     Active Substance: BROTIZOLAM
     Indication: Schizophrenia
  6. DIAZEPAM [Concomitant]
     Active Substance: DIAZEPAM
     Indication: Seizure
     Route: 042
  7. MIDAZOLAM [Concomitant]
     Active Substance: MIDAZOLAM
     Indication: Status epilepticus
  8. NOREPINEPHRINE [Concomitant]
     Active Substance: NOREPINEPHRINE
     Indication: Blood pressure measurement
  9. NALOXONE [Concomitant]
     Active Substance: NALOXONE
     Indication: Toxicity to various agents
  10. PROPOFOL [Concomitant]
     Active Substance: PROPOFOL
     Indication: Status epilepticus
  11. DEXTROMETHORPHAN [Concomitant]
     Active Substance: DEXTROMETHORPHAN
     Indication: Product used for unknown indication

REACTIONS (3)
  - Drug interaction [Unknown]
  - Intentional overdose [Unknown]
  - Suicide attempt [Unknown]
